FAERS Safety Report 5044970-X (Version None)
Quarter: 2006Q2

REPORT INFORMATION
  Report Type: 
  Country: None (occurrence: None)
  Receive Date: 20060601
  Receipt Date: 20060314
  Transmission Date: 20061013
  Serious: No
  Sender: FDA-Public Use
  Company Number: US200603004899

PATIENT
  Age: 43 Year
  Sex: Female

DRUGS (2)
  1. CYMBALTA [Suspect]
     Indication: SEASONAL AFFECTIVE DISORDER
     Dosage: SEE IMAGE
  2. CYMBALTA [Suspect]
     Indication: SEASONAL AFFECTIVE DISORDER
     Dosage: SEE IMAGE

REACTIONS (5)
  - FEELING JITTERY [None]
  - FORMICATION [None]
  - PARAESTHESIA [None]
  - RESTLESSNESS [None]
  - TREMOR [None]
